FAERS Safety Report 19289608 (Version 1)
Quarter: 2021Q2

REPORT INFORMATION
  Report Type: Spontaneous
  Country: US (occurrence: US)
  Receive Date: 20210521
  Receipt Date: 20210521
  Transmission Date: 20210717
  Serious: No
  Sender: FDA-Public Use
  Company Number: US-NEXGEN PHARMA, INC.-2110825

PATIENT
  Age: 49 Year
  Sex: Female

DRUGS (1)
  1. CHENODAL [Suspect]
     Active Substance: CHENODIOL
     Indication: LIPID METABOLISM DISORDER
     Route: 048
     Dates: start: 20200531

REACTIONS (5)
  - Balance disorder [Not Recovered/Not Resolved]
  - Drooling [Not Recovered/Not Resolved]
  - Diarrhoea [None]
  - Lipid metabolism disorder [None]
  - Eating disorder [Not Recovered/Not Resolved]
